FAERS Safety Report 25804953 (Version 1)
Quarter: 2025Q3

REPORT INFORMATION
  Report Type: Spontaneous
  Country: US (occurrence: US)
  Receive Date: 20250916
  Receipt Date: 20250916
  Transmission Date: 20251020
  Serious: Yes (Death)
  Sender: AMGEN
  Company Number: US-AMGEN-USASP2025180049

PATIENT

DRUGS (6)
  1. FILGRASTIM [Suspect]
     Active Substance: FILGRASTIM
     Indication: Prophylaxis
     Dosage: 300 MILLIGRAM, QD (ON DAY 4, TILL ANC COUNT REACHED TO MORE THAN AND EQUAL TO 500), HYPERCVAD (ALL)
     Route: 058
  2. FILGRASTIM [Suspect]
     Active Substance: FILGRASTIM
     Dosage: 480 MILLIGRAM, QD (ON DAY 4, TILL ANC COUNT REACHED TO MORE THAN AND EQUAL TO 500)
     Route: 058
  3. NEULASTA [Suspect]
     Active Substance: PEGFILGRASTIM
     Indication: Prophylaxis
     Route: 058
  4. RITUXIMAB [Suspect]
     Active Substance: RITUXIMAB
     Indication: Acute lymphocytic leukaemia
     Route: 040
  5. PREDNISONE [Suspect]
     Active Substance: PREDNISONE
     Indication: Acute lymphocytic leukaemia
     Dosage: 30 MILLIGRAM/SQ. METER, BID ON DAY 1-28
     Route: 065
  6. PREDNISONE [Suspect]
     Active Substance: PREDNISONE
     Dosage: 60 MILLIGRAM/SQ. METER, QD (DAY 1-21 OR 1-7 FOR MORE THAN 60 YEAR OLD) (60 MG/M^2  ON DAY 1-5) (60 M
     Route: 048

REACTIONS (3)
  - Death [Fatal]
  - Adverse drug reaction [Unknown]
  - Hypertension [Unknown]
